FAERS Safety Report 15756470 (Version 1)
Quarter: 2018Q4

REPORT INFORMATION
  Report Type: Spontaneous
  Country: US (occurrence: US)
  Receive Date: 20181206
  Receipt Date: 20181206
  Transmission Date: 20190205
  Serious: No
  Sender: FDA-Public Use
  Company Number: None

PATIENT
  Age: 39 Year
  Sex: Female

DRUGS (1)
  1. AVONEX PEN [Suspect]
     Active Substance: INTERFERON BETA-1A
     Indication: MULTIPLE SCLEROSIS
     Route: 058
     Dates: start: 20180427

REACTIONS (5)
  - Injection site pain [None]
  - Syringe issue [None]
  - Injection site extravasation [None]
  - Injection site haemorrhage [None]
  - Device issue [None]

NARRATIVE: CASE EVENT DATE: 20181201
